FAERS Safety Report 14071433 (Version 1)
Quarter: 2017Q4

REPORT INFORMATION
  Report Type: Spontaneous
  Country: US (occurrence: None)
  Receive Date: 20171010
  Receipt Date: 20171010
  Transmission Date: 20180321
  Serious: Yes (Life-Threatening, Hospitalization, Other)
  Sender: FDA-Public Use
  Company Number: None

PATIENT
  Sex: Female
  Weight: 123.38 kg

DRUGS (3)
  1. BEYAZ [Concomitant]
     Active Substance: DROSPIRENONE\ETHINYL ESTRADIOL\LEVOMEFOLATE CALCIUM
  2. LEVETIRACETAM. [Concomitant]
     Active Substance: LEVETIRACETAM
  3. NEXPLANON [Suspect]
     Active Substance: ETONOGESTREL
     Dates: start: 20170322, end: 20170525

REACTIONS (2)
  - Seizure [None]
  - Road traffic accident [None]

NARRATIVE: CASE EVENT DATE: 20170413
